FAERS Safety Report 10170588 (Version 1)
Quarter: 2014Q2

REPORT INFORMATION
  Report Type: Report from Study
  Country: NL (occurrence: NL)
  Receive Date: 20140513
  Receipt Date: 20140513
  Transmission Date: 20141212
  Serious: Yes (Death)
  Sender: FDA-Public Use
  Company Number: PHHY2014NL057911

PATIENT
  Age: 71 Year
  Sex: Female

DRUGS (2)
  1. ACLASTA [Suspect]
     Indication: OSTEOPOROSIS
     Dosage: 5/100 MG/ML, ONCE EVERY 52 WEEKS
     Route: 042
     Dates: start: 20130315
  2. ACLASTA [Suspect]
     Dosage: 5/100 MG/ML, ONCE EVERY 52 WEEKS
     Route: 042
     Dates: start: 20140401, end: 20140401

REACTIONS (1)
  - Death [Fatal]
